FAERS Safety Report 14752836 (Version 2)
Quarter: 2018Q3

REPORT INFORMATION
  Report Type: Spontaneous
  Country: US (occurrence: US)
  Receive Date: 20180412
  Receipt Date: 20180720
  Transmission Date: 20181010
  Serious: No
  Sender: FDA-Public Use
  Company Number: US-US WORLDMEDS, LLC-USW201803-000402

PATIENT
  Sex: Male
  Weight: 83 kg

DRUGS (13)
  1. ALBUTEROL. [Concomitant]
     Active Substance: ALBUTEROL
  2. MAGNESIUM [Concomitant]
     Active Substance: MAGNESIUM
  3. VITAMIN C [Concomitant]
     Active Substance: ASCORBIC ACID
  4. COENZYME Q10 [Concomitant]
     Active Substance: UBIDECARENONE
  5. ACETYLCARNITINE [Concomitant]
     Active Substance: ACETYLCARNITINE
  6. VITAMIN E [Concomitant]
     Active Substance: .ALPHA.-TOCOPHEROL
  7. NATURE?THROID [Concomitant]
     Active Substance: THYROID, PORCINE
  8. VITAMIN K [Concomitant]
     Active Substance: PHYTONADIONE
  9. TAMSULOSIN [Concomitant]
     Active Substance: TAMSULOSIN
  10. ALPRAZOLAM. [Concomitant]
     Active Substance: ALPRAZOLAM
  11. ZINC. [Concomitant]
     Active Substance: ZINC
  12. XADAGO [Suspect]
     Active Substance: SAFINAMIDE MESYLATE
     Indication: PARKINSON^S DISEASE
     Dates: start: 201801, end: 20180327
  13. VITAMIN D3 [Concomitant]
     Active Substance: CHOLECALCIFEROL

REACTIONS (2)
  - Headache [Not Recovered/Not Resolved]
  - Epistaxis [Recovered/Resolved]
